FAERS Safety Report 4315905-X (Version None)
Quarter: 2004Q1

REPORT INFORMATION
  Report Type: 
  Country: None (occurrence: None)
  Receive Date: 20040310
  Receipt Date: 20040225
  Transmission Date: 20041129
  Serious: Yes (Other)
  Sender: FDA-Public Use
  Company Number: 200410626GDS

PATIENT
  Age: 39 Year
  Sex: Male
  Weight: 78 kg

DRUGS (1)
  1. AVELOX [Suspect]
     Indication: ACUTE TONSILLITIS
     Dosage: 400 MG, TOTAL DAILY, ORAL
     Route: 048
     Dates: start: 20040218, end: 20040219

REACTIONS (7)
  - ABDOMINAL PAIN UPPER [None]
  - DIFFICULTY IN WALKING [None]
  - EYE PAIN [None]
  - FLUSHING [None]
  - HEADACHE [None]
  - NAUSEA [None]
  - SOMNOLENCE [None]
